FAERS Safety Report 9272939 (Version 1)
Quarter: 2013Q2

REPORT INFORMATION
  Report Type: Report from Study
  Country: US (occurrence: US)
  Receive Date: 20130506
  Receipt Date: 20130506
  Transmission Date: 20140414
  Serious: Yes (Other)
  Sender: FDA-Public Use
  Company Number: US-PFIZER INC-2013136458

PATIENT
  Sex: Male

DRUGS (5)
  1. SOLU-MEDROL [Suspect]
     Indication: CROHN^S DISEASE
     Dosage: 120 MG, UNK
     Route: 042
  2. PREDNISONE [Suspect]
     Indication: CROHN^S DISEASE
     Dosage: 80 MG, UNK
  3. REMICADE [Suspect]
     Indication: CROHN^S DISEASE
     Dosage: UNK
     Route: 042
  4. STEROIDS NOS [Suspect]
     Indication: CROHN^S DISEASE
     Dosage: UNK
  5. VANCOMYCIN [Concomitant]
     Indication: CLOSTRIDIUM DIFFICILE INFECTION
     Dosage: UNK, 1 IN 6 HOUR

REACTIONS (1)
  - Clostridial infection [Recovered/Resolved]
